FAERS Safety Report 5726247-X (Version None)
Quarter: 2008Q2

REPORT INFORMATION
  Report Type: 
  Country: None (occurrence: None)
  Receive Date: 20080430
  Receipt Date: 20070228
  Transmission Date: 20081010
  Serious: Yes (Disabling)
  Sender: FDA-Public Use
  Company Number: ABVAF-07-0198

PATIENT
  Age: 72 Year
  Sex: Female
  Weight: 45.8133 kg

DRUGS (5)
  1. ABRAXANE [Suspect]
     Indication: BREAST CANCER METASTATIC
     Dosage: 70 MG (WEEKLY), INTRAVENOUS
     Route: 042
     Dates: start: 20061213, end: 20070214
  2. AROMASIN [Concomitant]
  3. DARVOCET [Concomitant]
  4. PRINIVIL [Concomitant]
  5. COREG [Concomitant]

REACTIONS (2)
  - BLINDNESS UNILATERAL [None]
  - PUPILLARY DISORDER [None]
